FAERS Safety Report 9349609 (Version 2)
Quarter: 2013Q3

REPORT INFORMATION
  Report Type: Spontaneous
  Country: CO (occurrence: None)
  Receive Date: 20130611
  Receipt Date: 20130807
  Transmission Date: 20140515
  Serious: Yes (Hospitalization)
  Sender: FDA-Public Use
  Company Number: DSU-2013-03515

PATIENT
  Age: 49 Year
  Sex: Female

DRUGS (4)
  1. OLMETEC [Suspect]
     Indication: HYPERTENSION
     Route: 048
     Dates: start: 201205, end: 201304
  2. LIPITOR [Suspect]
     Indication: BLOOD CHOLESTEROL INCREASED
     Dosage: 40 MG (40 MG, Q 3 DAYS), PER ORAL
     Dates: start: 20130426
  3. LIPITOR [Suspect]
     Indication: THROMBOSIS
     Dosage: 40 MG (40 MG, Q 3 DAYS), PER ORAL
     Dates: start: 20130426
  4. ASA [Concomitant]

REACTIONS (6)
  - Cerebral thrombosis [None]
  - Ischaemia [None]
  - Blood cholesterol increased [None]
  - Muscular weakness [None]
  - Constipation [None]
  - Hypoaesthesia [None]
